FAERS Safety Report 10218749 (Version 1)
Quarter: 2014Q2

REPORT INFORMATION
  Report Type: Report from Study
  Country: CA (occurrence: CA)
  Receive Date: 20140605
  Receipt Date: 20140605
  Transmission Date: 20141212
  Serious: Yes (Disabling)
  Sender: FDA-Public Use
  Company Number: CA-ABBVIE-14P-028-1243347-00

PATIENT
  Sex: Male

DRUGS (2)
  1. HUMIRA [Suspect]
     Indication: PSORIASIS
     Route: 058
  2. HUMIRA [Suspect]
     Dates: end: 20140513

REACTIONS (5)
  - Abasia [Unknown]
  - Oedema peripheral [Unknown]
  - Psoriasis [Unknown]
  - Arthritis [Unknown]
  - Pain [Unknown]
